FAERS Safety Report 19710987 (Version 1)
Quarter: 2021Q3

REPORT INFORMATION
  Report Type: Spontaneous
  Country: CN (occurrence: CN)
  Receive Date: 20210816
  Receipt Date: 20210816
  Transmission Date: 20211014
  Serious: Yes (Other)
  Sender: FDA-Public Use
  Company Number: CN-SA-2021SA266541

PATIENT
  Age: 61 Year
  Sex: Male

DRUGS (2)
  1. PLAVIX [Suspect]
     Active Substance: CLOPIDOGREL BISULFATE
     Indication: END STAGE RENAL DISEASE
     Dosage: 75 MG, QD
     Route: 048
     Dates: end: 20210625
  2. ACETYLSALICYLIC ACID [Suspect]
     Active Substance: ASPIRIN
     Indication: END STAGE RENAL DISEASE
     Dosage: 0.1 G, QD
     Route: 048
     Dates: end: 20210625

REACTIONS (1)
  - Gram stain positive [Recovering/Resolving]

NARRATIVE: CASE EVENT DATE: 20210624
